FAERS Safety Report 9165422 (Version 2)
Quarter: 2013Q2

REPORT INFORMATION
  Report Type: Spontaneous
  Country: JP (occurrence: None)
  Receive Date: 20130301
  Receipt Date: 20130411
  Transmission Date: 20140414
  Serious: Yes (Life-Threatening, Other)
  Sender: FDA-Public Use
  Company Number: SYM-2013-00948

PATIENT
  Age: 64 Year
  Sex: Male

DRUGS (8)
  1. FLUOROURACIL(FLUOROURACIL)(INJECTION)(FLUOR0URACIL)? [Suspect]
     Indication: COLON CANCER
     Route: 040
     Dates: start: 201105
  2. OXALIPLATIN(OXALIPLATIN) (INJECTION)(OXALIPLATIN) [Suspect]
     Indication: COLON CANCER
     Route: 041
     Dates: start: 20110413
  3. OXALIPLATIN(OXALIPLATIN) (INJECTION)(OXALIPLATIN) [Suspect]
     Route: 041
     Dates: start: 20110413
  4. AVASTIN (BEVACIZUMAB) (INJECTION) (BEVACIZUMAB) [Suspect]
     Indication: COLON CANCER
     Route: 041
     Dates: start: 20110525
  5. CALCIUM LEVOFOLINATE (CALCIUM LEVOFOLINATE) (CALCIUM LEVOFOLINATE) [Concomitant]
  6. KYTRIL (GRANISETRON HYDROCHLORIDE) [Concomitant]
  7. DECADRON (DEXAMETHASONE) [Concomitant]
  8. DEXCHLORPHENIRAMINE MALEATE (DEXCHLORPHENIRAMINE MALEATE) [Concomitant]

REACTIONS (4)
  - Splenomegaly [None]
  - Platelet count decreased [None]
  - Varices oesophageal [None]
  - Venoocclusive liver disease [None]
